FAERS Safety Report 21682457 (Version 1)
Quarter: 2022Q4

REPORT INFORMATION
  Report Type: Spontaneous
  Country: US (occurrence: US)
  Receive Date: 20221205
  Receipt Date: 20221205
  Transmission Date: 20230113
  Serious: No
  Sender: FDA-Public Use
  Company Number: US-JNJFOC-20221154204

PATIENT
  Sex: Female

DRUGS (1)
  1. WOMENS ROGAINE UNSCENTED [Suspect]
     Active Substance: MINOXIDIL
     Indication: Alopecia
     Dosage: ONE AND A HALF OR TWO CAPFUL
     Route: 061
     Dates: start: 2014

REACTIONS (2)
  - Overdose [Unknown]
  - Expired product administered [Unknown]

NARRATIVE: CASE EVENT DATE: 20140101
